FAERS Safety Report 8502598-0 (Version None)
Quarter: 2012Q3

REPORT INFORMATION
  Report Type: 
  Country: None (occurrence: None)
  Receive Date: 20120711
  Receipt Date: 20120705
  Transmission Date: 20120928
  Serious: Yes (Death)
  Sender: FDA-Public Use
  Company Number: CO-PFIZER INC-2012162628

PATIENT
  Sex: Female

DRUGS (3)
  1. OLMESARTAN MEDOXOMIL AND HYDROCHLOROTHIZIDE [Suspect]
     Dosage: OLMESARTAN MEDOXOMIL 20 MG/HYDROCHLOROTHIAZIDE 12.5 MG
     Dates: start: 20080103
  2. NORVASC [Suspect]
     Dosage: UNK
     Dates: start: 20080103
  3. LIPITOR [Suspect]
     Dosage: 10 MG, UNK
     Dates: start: 20080103

REACTIONS (1)
  - DEATH [None]
